FAERS Safety Report 8336092-7 (Version None)
Quarter: 2012Q2

REPORT INFORMATION
  Report Type: 
  Country: None (occurrence: None)
  Receive Date: 20120504
  Receipt Date: 20120428
  Transmission Date: 20120825
  Serious: Yes (Other)
  Sender: FDA-Public Use
  Company Number: US-JNJFOC-20120502664

PATIENT
  Sex: Male
  Weight: 88 kg

DRUGS (3)
  1. ZOLOFT [Concomitant]
     Indication: DEPRESSION
     Route: 048
  2. DURAGESIC-100 [Suspect]
     Indication: INTERVERTEBRAL DISC DEGENERATION
     Route: 062
     Dates: start: 20100101
  3. ALPRAZOLAM [Concomitant]
     Indication: ANXIETY
     Route: 048

REACTIONS (7)
  - ADVERSE EVENT [None]
  - PANIC ATTACK [None]
  - BLOOD CHOLESTEROL ABNORMAL [None]
  - THYROID DISORDER [None]
  - DEVICE OCCLUSION [None]
  - ANXIETY [None]
  - DRUG EFFECT DECREASED [None]
